FAERS Safety Report 7927743-7 (Version None)
Quarter: 2011Q4

REPORT INFORMATION
  Report Type: 
  Country: None (occurrence: None)
  Receive Date: 20111118
  Receipt Date: 20110616
  Transmission Date: 20120403
  Serious: No
  Sender: FDA-Public Use
  Company Number: US-BRISTOL-MYERS SQUIBB COMPANY-15659360

PATIENT
  Age: 55 Year
  Sex: Female

DRUGS (7)
  1. BYETTA [Concomitant]
  2. MAXZIDE [Concomitant]
  3. ATENOLOL [Concomitant]
  4. GLUCOPHAGE XR [Suspect]
     Indication: DIABETES MELLITUS
  5. PROTONIX [Concomitant]
  6. CRESTOR [Concomitant]
  7. DIOVAN [Concomitant]

REACTIONS (1)
  - BLOOD GLUCOSE ABNORMAL [None]
